FAERS Safety Report 18269605 (Version 1)
Quarter: 2020Q3

REPORT INFORMATION
  Report Type: Spontaneous
  Country: FR (occurrence: FR)
  Receive Date: 20200915
  Receipt Date: 20200915
  Transmission Date: 20201103
  Serious: Yes (Other)
  Sender: FDA-Public Use
  Company Number: FR-MYLANLABS-2020M1077816

PATIENT
  Age: 34 Year
  Sex: Male
  Weight: 73 kg

DRUGS (11)
  1. ARACYTINE [Suspect]
     Active Substance: CYTARABINE
     Indication: CHEMOTHERAPY
     Dosage: 2000 MILLIGRAM/SQ. METER(SUR 3 CURES)
     Route: 041
     Dates: start: 201710, end: 201711
  2. BICNU [Suspect]
     Active Substance: CARMUSTINE
     Indication: TRANSPLANT
     Dosage: UNK
     Route: 041
     Dates: start: 20171229
  3. ENDOXAN                            /00021101/ [Suspect]
     Active Substance: CYCLOPHOSPHAMIDE
     Indication: CHEMOTHERAPY
     Route: 041
     Dates: start: 201404, end: 201408
  4. MELPHALAN. [Suspect]
     Active Substance: MELPHALAN
     Indication: TRANSPLANT
     Dosage: UNK
     Route: 042
     Dates: start: 20171229
  5. IBRUTINIB [Suspect]
     Active Substance: IBRUTINIB
     Indication: CHEMOTHERAPY
     Dosage: 560 MILLIGRAM(560 MG PAR JOUR PENDANT 13 JOURS ? CHAQUE CUR)
     Route: 048
     Dates: start: 201710, end: 201711
  6. DEXAMETHASONE. [Concomitant]
     Active Substance: DEXAMETHASONE
     Indication: CHEMOTHERAPY
     Dosage: 40 MG PENDANT 4 JOURS SUR 3 CURES
     Route: 042
     Dates: start: 201710, end: 201711
  7. ETOPOSIDE. [Suspect]
     Active Substance: ETOPOSIDE
     Indication: TRANSPLANT
     Dosage: UNK
     Route: 041
     Dates: start: 20171229
  8. MABTHERA [Suspect]
     Active Substance: RITUXIMAB
     Indication: CHEMOTHERAPY
     Dosage: UNK
     Route: 042
     Dates: start: 201410, end: 201606
  9. OXALIPLATIN. [Suspect]
     Active Substance: OXALIPLATIN
     Indication: CHEMOTHERAPY
     Dosage: 130 MILLIGRAM/SQ. METER
     Route: 042
     Dates: start: 201710, end: 201711
  10. VINCRISTINE                        /00078802/ [Suspect]
     Active Substance: VINCRISTINE
     Indication: CHEMOTHERAPY
     Dosage: UNK
     Route: 041
     Dates: start: 201404, end: 201408
  11. DOXORUBICIN [Suspect]
     Active Substance: DOXORUBICIN
     Indication: CHEMOTHERAPY
     Dosage: UNK
     Route: 041
     Dates: start: 201404, end: 201408

REACTIONS (1)
  - Ventricular dysfunction [Not Recovered/Not Resolved]

NARRATIVE: CASE EVENT DATE: 201809
